FAERS Safety Report 9096494 (Version 1)
Quarter: 2013Q1

REPORT INFORMATION
  Report Type: Spontaneous
  Country: DK (occurrence: None)
  Receive Date: 20130124
  Receipt Date: 20130124
  Transmission Date: 20140127
  Serious: Yes (Hospitalization)
  Sender: FDA-Public Use
  Company Number: 2013MA000494

PATIENT
  Age: 18 Year
  Sex: Female

DRUGS (1)
  1. LEVETIRACETAM ORAL SOLUTION, 100MG/ML (AMALLC) (LEVETIRACETAM) [Suspect]
     Indication: EPILEPSY

REACTIONS (1)
  - Drug ineffective [None]
